FAERS Safety Report 5762187-8 (Version None)
Quarter: 2008Q2

REPORT INFORMATION
  Report Type: 
  Country: None (occurrence: None)
  Receive Date: 20080609
  Receipt Date: 20080512
  Transmission Date: 20081010
  Serious: Yes (Death, Other)
  Sender: FDA-Public Use
  Company Number: GB-RANBAXY-2008RR-14956

PATIENT

DRUGS (4)
  1. AMITRIPTYLINE HCL [Suspect]
     Indication: DEPRESSION
     Route: 048
  2. CODEINE SUL TAB [Suspect]
  3. MORPHINE [Suspect]
  4. NORTRIPTYLINE HYDROCHLORIDE [Suspect]

REACTIONS (4)
  - DEATH [None]
  - DRUG ABUSE [None]
  - DRUG INTERACTION [None]
  - DRUG TOXICITY [None]
